FAERS Safety Report 12526473 (Version 1)
Quarter: 2016Q3

REPORT INFORMATION
  Report Type: Spontaneous
  Country: US (occurrence: None)
  Receive Date: 20160701
  Receipt Date: 20160701
  Transmission Date: 20161109
  Serious: Yes (Hospitalization)
  Sender: FDA-Public Use
  Company Number: None

PATIENT
  Age: 31 Year
  Sex: Female
  Weight: 86.18 kg

DRUGS (1)
  1. SKYLA [Suspect]
     Active Substance: LEVONORGESTREL

REACTIONS (8)
  - Depression [None]
  - Blood cholesterol increased [None]
  - Smear cervix abnormal [None]
  - Weight increased [None]
  - Migraine [None]
  - Blood pressure increased [None]
  - Acne [None]
  - Adnexa uteri pain [None]

NARRATIVE: CASE EVENT DATE: 20150430
